FAERS Safety Report 23676878 (Version 1)
Quarter: 2024Q1

REPORT INFORMATION
  Report Type: Spontaneous
  Country: FR (occurrence: FR)
  Receive Date: 20240327
  Receipt Date: 20240327
  Transmission Date: 20240410
  Serious: Yes (Other)
  Sender: FDA-Public Use
  Company Number: None

PATIENT
  Age: 73 Year
  Sex: Female

DRUGS (3)
  1. AVASTIN [Suspect]
     Active Substance: BEVACIZUMAB
     Indication: Bronchial carcinoma
     Dosage: 25 MG/ML, CONCENTRATE FOR SOLUTION FOR INFUSION
     Route: 065
     Dates: start: 20230801
  2. PEMETREXED [Concomitant]
     Active Substance: PEMETREXED
     Indication: Bronchial carcinoma
     Dates: start: 20230801
  3. CARBOPLATIN [Concomitant]
     Active Substance: CARBOPLATIN
     Indication: Bronchial carcinoma
     Dates: start: 20230801

REACTIONS (2)
  - Corneal disorder [Not Recovered/Not Resolved]
  - Visual acuity reduced [Not Recovered/Not Resolved]

NARRATIVE: CASE EVENT DATE: 20240215
